FAERS Safety Report 8183499-7 (Version None)
Quarter: 2012Q1

REPORT INFORMATION
  Report Type: 
  Country: None (occurrence: None)
  Receive Date: 20120305
  Receipt Date: 20120224
  Transmission Date: 20120608
  Serious: Yes (Other)
  Sender: FDA-Public Use
  Company Number: US-BAYER-2011-105694

PATIENT
  Age: 22 Year
  Sex: Female
  Weight: 118 kg

DRUGS (7)
  1. AZO GANTANOL [Concomitant]
     Indication: BLADDER DISORDER
  2. TYLENOL 1 [Concomitant]
     Indication: PAIN
  3. DROSPIRENONE AND ETHINYL ESTRADIOL [Suspect]
     Dosage: UNK
     Dates: start: 20080101, end: 20100101
  4. ACID REDUCER [Concomitant]
     Indication: DYSPEPSIA
  5. YASMIN [Suspect]
     Dosage: UNK
     Dates: start: 20080101, end: 20100101
  6. EXCEDRIN ASPIRIN FREE [Concomitant]
     Indication: PAIN
  7. SYNTHROID [Concomitant]
     Indication: THYROID DISORDER
     Dosage: UNK
     Dates: start: 20000101

REACTIONS (8)
  - INJURY [None]
  - ABDOMINAL PAIN [None]
  - PAIN [None]
  - ANXIETY [None]
  - EMOTIONAL DISTRESS [None]
  - CHOLECYSTITIS CHRONIC [None]
  - CHOLELITHIASIS [None]
  - DISCOMFORT [None]
